FAERS Safety Report 19216143 (Version 1)
Quarter: 2021Q2

REPORT INFORMATION
  Report Type: Other
  Country: US (occurrence: US)
  Receive Date: 20210505
  Receipt Date: 20210505
  Transmission Date: 20210717
  Serious: Yes (Other)
  Sender: FDA-Public Use
  Company Number: US-KNIGHT THERAPEUTICS (USA) INC.-2110215

PATIENT
  Age: 26 Year
  Sex: Male

DRUGS (1)
  1. IMPAVIDO [Suspect]
     Active Substance: MILTEFOSINE
     Indication: BALAMUTHIA INFECTION

REACTIONS (6)
  - Pancreatitis [Recovered/Resolved]
  - Drug effective for unapproved indication [Recovered/Resolved]
  - Renal failure [Recovered/Resolved]
  - Vomiting [Unknown]
  - Off label use [Unknown]
  - Nausea [Unknown]
